FAERS Safety Report 22267010 (Version 1)
Quarter: 2023Q2

REPORT INFORMATION
  Report Type: Spontaneous
  Country: US (occurrence: US)
  Receive Date: 20230428
  Receipt Date: 20230428
  Transmission Date: 20230721
  Serious: No
  Sender: FDA-Public Use
  Company Number: US-TEVA-2023-US-2878614

PATIENT
  Sex: Female

DRUGS (1)
  1. SCOPOLAMINE [Suspect]
     Active Substance: SCOPOLAMINE
     Indication: Product used for unknown indication
     Dosage: STRENGTH: 1 MG / 3 DAYS

REACTIONS (4)
  - Dizziness [Unknown]
  - Nausea [Unknown]
  - Dry mouth [Unknown]
  - Extra dose administered [Unknown]
